FAERS Safety Report 22085565 (Version 3)
Quarter: 2023Q2

REPORT INFORMATION
  Report Type: Spontaneous
  Country: US (occurrence: US)
  Receive Date: 20230310
  Receipt Date: 20230505
  Transmission Date: 20230721
  Serious: No
  Sender: FDA-Public Use
  Company Number: US-SA-SAC20230307000048

PATIENT
  Age: 55 Year
  Sex: Female
  Weight: 102.04 kg

DRUGS (5)
  1. DUPIXENT [Suspect]
     Active Substance: DUPILUMAB
     Indication: Dermatitis atopic
     Dosage: 300 MG, QOW
     Route: 058
  2. RINVOQ [Suspect]
     Active Substance: UPADACITINIB
     Dosage: 15 MG, QD
     Route: 065
  3. HUMIRA [Suspect]
     Active Substance: ADALIMUMAB
     Dosage: UNK
     Dates: start: 202212
  4. HUMIRA [Suspect]
     Active Substance: ADALIMUMAB
     Dosage: UNK
     Dates: start: 202301
  5. COSENTYX [Suspect]
     Active Substance: SECUKINUMAB
     Dosage: UNK

REACTIONS (13)
  - Spondyloarthropathy [Unknown]
  - Throat tightness [Recovered/Resolved]
  - Pharyngeal swelling [Recovered/Resolved]
  - Gastrointestinal viral infection [Unknown]
  - Joint stiffness [Recovering/Resolving]
  - Musculoskeletal discomfort [Recovering/Resolving]
  - Limb discomfort [Recovering/Resolving]
  - Musculoskeletal stiffness [Recovering/Resolving]
  - Alopecia [Unknown]
  - Dermatitis atopic [Unknown]
  - Pruritus [Unknown]
  - Erythema [Unknown]
  - Therapeutic response shortened [Unknown]

NARRATIVE: CASE EVENT DATE: 20221201
